FAERS Safety Report 8268937 (Version 7)
Quarter: 2013Q4

REPORT INFORMATION
  Report Type: Spontaneous
  Country: JP (occurrence: JP)
  Receive Date: 20111130
  Receipt Date: 20131118
  Transmission Date: 20140711
  Serious: Yes (Hospitalization)
  Sender: FDA-Public Use
  Company Number: JP-B.I. PHARMACEUTICALS,INC./RIDGEFIELD-2011-EU-00792GD

PATIENT
  Age: 57 Year
  Sex: Male
  Weight: 66 kg

DRUGS (9)
  1. DABIGATRAN [Suspect]
     Indication: ATRIAL FIBRILLATION
     Dosage: 300 MG
     Route: 048
     Dates: start: 20110505, end: 20110516
  2. PAXIL [Concomitant]
     Indication: DEPRESSION
     Dosage: 20 MG
     Route: 065
  3. LIPITOR [Concomitant]
     Indication: HYPERLIPIDAEMIA
     Dosage: 10 MG
     Route: 065
  4. MERCAZOLE [Concomitant]
     Indication: HYPERTHYROIDISM
     Dosage: 5 MG
     Route: 065
  5. ANCARON [Concomitant]
     Indication: ATRIAL FIBRILLATION
     Dosage: 200 MG
     Route: 065
  6. HALFDIGOXIN [Concomitant]
     Indication: ATRIAL FIBRILLATION
     Dosage: 0.125 MG
     Route: 065
  7. RENIVACE [Concomitant]
     Dosage: 5 MG
     Route: 065
  8. LASIX [Concomitant]
     Dosage: 40 MG
     Route: 065
  9. ALDACTONE A [Concomitant]
     Dosage: 50 MG
     Route: 065

REACTIONS (3)
  - Peripheral artery thrombosis [Recovered/Resolved]
  - Drug effect incomplete [Unknown]
  - Off label use [Unknown]
